FAERS Safety Report 9840093 (Version 1)
Quarter: 2013Q4

REPORT INFORMATION
  Report Type: Spontaneous
  Country: US (occurrence: None)
  Receive Date: 20131206
  Receipt Date: 20131206
  Transmission Date: 20140711
  Serious: Yes (Hospitalization)
  Sender: FDA-Public Use
  Company Number: 1000041473

PATIENT
  Age: 83 Year
  Sex: Female

DRUGS (1)
  1. NAMENDA [Suspect]
     Indication: DEMENTIA ALZHEIMER^S TYPE
     Dosage: 10 MG, 2 IN 1 D
     Dates: start: 2012

REACTIONS (3)
  - Cerebrovascular accident [None]
  - Fall [None]
  - Rhinorrhoea [None]
